FAERS Safety Report 8347688-0 (Version None)
Quarter: 2012Q2

REPORT INFORMATION
  Report Type: 
  Country: None (occurrence: None)
  Receive Date: 20120509
  Receipt Date: 20120507
  Transmission Date: 20120825
  Serious: Yes (Other)
  Sender: FDA-Public Use
  Company Number: US-BAYER-2012-044405

PATIENT
  Age: 72 Year
  Sex: Male

DRUGS (1)
  1. NEXAVAR [Suspect]
     Indication: HEPATIC NEOPLASM MALIGNANT
     Dosage: 1 AM AND 1 PM
     Dates: start: 20120427, end: 20120502

REACTIONS (4)
  - VOMITING [None]
  - MENTAL IMPAIRMENT [None]
  - LETHARGY [None]
  - ASTHENIA [None]
